FAERS Safety Report 19074934 (Version 2)
Quarter: 2021Q2

REPORT INFORMATION
  Report Type: Report from Study
  Country: None (occurrence: CA)
  Receive Date: 20210331
  Receipt Date: 20210423
  Transmission Date: 20210717
  Serious: Yes (Other)
  Sender: FDA-Public Use
  Company Number: CA-ABBVIE-21K-028-3835132-00

PATIENT
  Sex: Female

DRUGS (1)
  1. HUMIRA [Suspect]
     Active Substance: ADALIMUMAB
     Indication: COLITIS ULCERATIVE
     Route: 058
     Dates: start: 20201126, end: 20210417

REACTIONS (6)
  - Feeling abnormal [Not Recovered/Not Resolved]
  - Abdominal pain [Not Recovered/Not Resolved]
  - Obstruction [Not Recovered/Not Resolved]
  - Chest pain [Unknown]
  - Aphonia [Not Recovered/Not Resolved]
  - Dyspnoea [Not Recovered/Not Resolved]
